FAERS Safety Report 25863862 (Version 1)
Quarter: 2025Q3

REPORT INFORMATION
  Report Type: Spontaneous
  Country: US (occurrence: US)
  Receive Date: 20250930
  Receipt Date: 20250930
  Transmission Date: 20251020
  Serious: No
  Sender: SECURA BIO
  Company Number: US-SECURA BIO, INC.-2024-SECUR-US000114

PATIENT

DRUGS (1)
  1. COPIKTRA [Suspect]
     Active Substance: DUVELISIB
     Indication: Angioimmunoblastic T-cell lymphoma
     Dosage: 75 MG, BID
     Route: 048
     Dates: start: 202410

REACTIONS (5)
  - Nasal congestion [Unknown]
  - Neuropathy peripheral [Unknown]
  - Arthralgia [Unknown]
  - Diarrhoea [Unknown]
  - Constipation [Unknown]

NARRATIVE: CASE EVENT DATE: 20240101
